FAERS Safety Report 9699284 (Version 2)
Quarter: 2015Q3

REPORT INFORMATION
  Report Type: Spontaneous
  Country: US (occurrence: US)
  Receive Date: 20131120
  Receipt Date: 20150803
  Transmission Date: 20151125
  Serious: No
  Sender: FDA-Public Use
  Company Number: US-GILEAD-2008-0015411

PATIENT
  Sex: Male

DRUGS (9)
  1. COLACE [Concomitant]
     Active Substance: DOCUSATE SODIUM
  2. RESTORIL [Concomitant]
     Active Substance: TEMAZEPAM
  3. NEXIUM [Concomitant]
     Active Substance: ESOMEPRAZOLE MAGNESIUM
  4. REVATIO [Concomitant]
     Active Substance: SILDENAFIL CITRATE
  5. MULTIVITAMIN [Concomitant]
     Active Substance: VITAMINS
  6. LASIX [Concomitant]
     Active Substance: FUROSEMIDE
  7. LOPRESSOR [Concomitant]
     Active Substance: METOPROLOL TARTRATE
  8. ASPIRIN. [Concomitant]
     Active Substance: ASPIRIN
  9. LETAIRIS [Suspect]
     Active Substance: AMBRISENTAN
     Indication: PULMONARY ARTERIAL HYPERTENSION
     Route: 048
     Dates: start: 20071128

REACTIONS (1)
  - Oedema peripheral [Unknown]
